FAERS Safety Report 6689765-6 (Version None)
Quarter: 2010Q2

REPORT INFORMATION
  Report Type: 
  Country: None (occurrence: None)
  Receive Date: 20100421
  Receipt Date: 20100413
  Transmission Date: 20101027
  Serious: Yes (Hospitalization, Disabling)
  Sender: FDA-Public Use
  Company Number: VE-ABBOTT-10P-178-0638773-00

PATIENT
  Age: 6 Year
  Sex: Female

DRUGS (3)
  1. SEVOFLURANE [Suspect]
     Indication: INDUCTION OF ANAESTHESIA
  2. SEVOFLURANE [Suspect]
     Indication: TONSILLECTOMY
  3. ROCURONIUM BROMIDE [Concomitant]
     Indication: ANAESTHESIA

REACTIONS (5)
  - ACUTE PULMONARY OEDEMA [None]
  - DELAYED RECOVERY FROM ANAESTHESIA [None]
  - HYPOKINESIA [None]
  - HYPOTONIA [None]
  - NUCLEAR MAGNETIC RESONANCE IMAGING BRAIN ABNORMAL [None]
